FAERS Safety Report 5240100-X (Version None)
Quarter: 2007Q1

REPORT INFORMATION
  Report Type: 
  Country: None (occurrence: None)
  Receive Date: 20070216
  Receipt Date: 20070207
  Transmission Date: 20070707
  Serious: Yes (Death, Other)
  Sender: FDA-Public Use
  Company Number: US-PFIZER INC-2007010610

PATIENT
  Sex: Female

DRUGS (1)
  1. GEODON [Suspect]
     Indication: AGITATION
     Route: 030

REACTIONS (1)
  - DEATH [None]
